FAERS Safety Report 11039963 (Version 3)
Quarter: 2015Q2

REPORT INFORMATION
  Report Type: Spontaneous
  Country: US (occurrence: US)
  Receive Date: 20150416
  Receipt Date: 20150624
  Transmission Date: 20150821
  Serious: Yes (Hospitalization, Other)
  Sender: FDA-Public Use
  Company Number: US-009507513-01104567

PATIENT
  Sex: Female

DRUGS (7)
  1. ALENDRONATE SODIUM. [Suspect]
     Active Substance: ALENDRONATE SODIUM
     Dosage: 70 MG, UNK
     Dates: start: 20080403, end: 20100122
  2. BUSPAR [Concomitant]
     Active Substance: BUSPIRONE HYDROCHLORIDE
  3. COLACE [Concomitant]
     Active Substance: DOCUSATE SODIUM
  4. FOSAMAX [Suspect]
     Active Substance: ALENDRONATE SODIUM
     Indication: OSTEOPOROSIS
     Dosage: 70 MG, QW
     Route: 048
     Dates: start: 20011011, end: 20091230
  5. MIACALCIN [Concomitant]
     Active Substance: CALCITONIN SALMON
  6. FOSAMAX [Suspect]
     Active Substance: ALENDRONATE SODIUM
     Indication: BONE DENSITY DECREASED
  7. MK-2933 [Concomitant]

REACTIONS (26)
  - Femur fracture [Recovering/Resolving]
  - Tendon rupture [Unknown]
  - Foot operation [Unknown]
  - Hypercholesterolaemia [Unknown]
  - Impaired healing [Not Recovered/Not Resolved]
  - Knee operation [Unknown]
  - Lethargy [Recovering/Resolving]
  - Chills [Recovering/Resolving]
  - Urine leukocyte esterase positive [Unknown]
  - Coronary artery disease [Unknown]
  - Anxiety [Unknown]
  - Arthritis [Unknown]
  - Procedural hypotension [Recovering/Resolving]
  - Cellulitis [Unknown]
  - Carotid bruit [Unknown]
  - Pyrexia [Recovering/Resolving]
  - Back pain [Recovering/Resolving]
  - Inflammation [Unknown]
  - White blood cells urine [Unknown]
  - Tendon operation [Unknown]
  - Hypertension [Unknown]
  - Pain in extremity [Recovering/Resolving]
  - Intramedullary rod insertion [Recovering/Resolving]
  - Knee operation [Unknown]
  - Asthenia [Unknown]
  - Arthralgia [Unknown]

NARRATIVE: CASE EVENT DATE: 20011022
